FAERS Safety Report 9705827 (Version 3)
Quarter: 2015Q3

REPORT INFORMATION
  Report Type: Spontaneous
  Country: US (occurrence: US)
  Receive Date: 20131122
  Receipt Date: 20150803
  Transmission Date: 20151125
  Serious: No
  Sender: FDA-Public Use
  Company Number: US-GILEAD-2008-0017756

PATIENT
  Age: 86 Year
  Sex: Male

DRUGS (9)
  1. ZOCOR [Concomitant]
     Active Substance: SIMVASTATIN
  2. LETAIRIS [Suspect]
     Active Substance: AMBRISENTAN
     Indication: PULMONARY ARTERIAL HYPERTENSION
     Route: 048
     Dates: start: 20080717, end: 200812
  3. COREG [Concomitant]
     Active Substance: CARVEDILOL
  4. K-DUR [Concomitant]
     Active Substance: POTASSIUM CHLORIDE
  5. MULTIVITAMIN [Concomitant]
     Active Substance: VITAMINS
  6. ASA LOW DOSE [Concomitant]
  7. REMERON [Concomitant]
     Active Substance: MIRTAZAPINE
  8. STOOL SOFTENER [Concomitant]
     Active Substance: DOCUSATE CALCIUM
  9. DEMADEX [Concomitant]
     Active Substance: TORSEMIDE

REACTIONS (4)
  - Paraesthesia [None]
  - Unevaluable event [None]
  - Constipation [None]
  - Hypoaesthesia [None]

NARRATIVE: CASE EVENT DATE: 20080717
